FAERS Safety Report 6243234-6 (Version None)
Quarter: 2009Q2

REPORT INFORMATION
  Report Type: 
  Country: None (occurrence: None)
  Receive Date: 20090622
  Receipt Date: 20090622
  Transmission Date: 20091009
  Serious: No
  Sender: FDA-Public Use
  Company Number: None

PATIENT
  Sex: Female
  Weight: 29.4838 kg

DRUGS (1)
  1. REGLAN [Suspect]
     Indication: GASTROOESOPHAGEAL REFLUX DISEASE
     Dosage: PO
     Route: 048
     Dates: start: 20030301, end: 20030601

REACTIONS (6)
  - ABNORMAL BEHAVIOUR [None]
  - EYE MOVEMENT DISORDER [None]
  - GRIMACING [None]
  - MOVEMENT DISORDER [None]
  - SOCIAL PROBLEM [None]
  - VISION BLURRED [None]
